FAERS Safety Report 8476137-7 (Version None)
Quarter: 2012Q2

REPORT INFORMATION
  Report Type: 
  Country: None (occurrence: None)
  Receive Date: 20120628
  Receipt Date: 20120619
  Transmission Date: 20120825
  Serious: Yes (Hospitalization)
  Sender: FDA-Public Use
  Company Number: US-ELI_LILLY_AND_COMPANY-US201205007604

PATIENT
  Sex: Female

DRUGS (1)
  1. FORTEO [Suspect]
     Dosage: 20 UG, UNKNOWN

REACTIONS (5)
  - DYSURIA [None]
  - URINARY TRACT INFECTION [None]
  - MALAISE [None]
  - VIRAL INFECTION [None]
  - KIDNEY INFECTION [None]
